FAERS Safety Report 7630390-8 (Version None)
Quarter: 2011Q3

REPORT INFORMATION
  Report Type: 
  Country: None (occurrence: None)
  Receive Date: 20110722
  Receipt Date: 20110713
  Transmission Date: 20111222
  Serious: Yes (Death)
  Sender: FDA-Public Use
  Company Number: US-GLAXOSMITHKLINE-A0936681A

PATIENT

DRUGS (3)
  1. DILTIAZEM [Concomitant]
  2. CARVEDILOL [Suspect]
     Route: 048
  3. LISINOPRIL [Concomitant]

REACTIONS (1)
  - DEATH [None]
